FAERS Safety Report 5377671-9 (Version None)
Quarter: 2007Q3

REPORT INFORMATION
  Report Type: 
  Country: None (occurrence: None)
  Receive Date: 20070703
  Receipt Date: 20070625
  Transmission Date: 20080115
  Serious: Yes (Other)
  Sender: FDA-Public Use
  Company Number: IE-PFIZER INC-2007038305

PATIENT
  Age: 30 Year
  Sex: Male
  Weight: 96 kg

DRUGS (1)
  1. CHAMPIX [Suspect]
     Indication: SMOKING CESSATION THERAPY
     Route: 048
     Dates: start: 20070410, end: 20070515

REACTIONS (3)
  - COLITIS ULCERATIVE [None]
  - DIARRHOEA HAEMORRHAGIC [None]
  - NAUSEA [None]
